FAERS Safety Report 6402712-7 (Version None)
Quarter: 2009Q4

REPORT INFORMATION
  Report Type: 
  Country: None (occurrence: None)
  Receive Date: 20091013
  Receipt Date: 20091005
  Transmission Date: 20100525
  Serious: Yes (Other)
  Sender: FDA-Public Use
  Company Number: GXBR2009US01928

PATIENT
  Age: 77 Year
  Sex: Male
  Weight: 77.1 kg

DRUGS (9)
  1. METFORMIN HCL [Suspect]
     Indication: TYPE 2 DIABETES MELLITUS
     Dosage: 1000MG BID AND 500MG QHS, ORAL
     Route: 048
     Dates: start: 20070101, end: 20090707
  2. PLAVIX [Concomitant]
  3. LOVASTATIN [Concomitant]
  4. PROTONIX [Concomitant]
  5. TOPROL-XL [Concomitant]
  6. ALBUTEROL [Concomitant]
  7. PULMICORT [Concomitant]
  8. OXYGEN (OXYGEN) [Concomitant]
  9. TYLENOL PM (DIPHENHYDRAMINE PARACETAMOL) [Concomitant]

REACTIONS (2)
  - BLADDER CANCER [None]
  - RENAL IMPAIRMENT [None]
